FAERS Safety Report 10022690 (Version 1)
Quarter: 2014Q1

REPORT INFORMATION
  Report Type: Spontaneous
  Country: GB (occurrence: GB)
  Receive Date: 20140319
  Receipt Date: 20140319
  Transmission Date: 20141002
  Serious: Yes (Other)
  Sender: FDA-Public Use
  Company Number: GB-PFIZER INC-2014077124

PATIENT
  Age: 68 Year
  Sex: Male
  Weight: 88.9 kg

DRUGS (8)
  1. RAMIPRIL [Suspect]
     Indication: HYPERTENSION
     Dosage: UNK
     Route: 048
  2. AMLODIPINE [Concomitant]
     Dosage: UNK
     Route: 065
  3. ARIPIPRAZOLE [Concomitant]
     Dosage: UNK
     Route: 065
  4. DULOXETINE HYDROCHLORIDE [Concomitant]
     Dosage: UNK
     Route: 065
  5. LAMOTRIGINE [Concomitant]
     Dosage: UNK
     Route: 065
  6. LOSARTAN [Concomitant]
     Dosage: UNK
     Route: 065
  7. MIRTAZAPINE [Concomitant]
     Dosage: UNK
     Route: 065
  8. TAMSULOSIN [Concomitant]
     Dosage: UNK
     Route: 065

REACTIONS (2)
  - Cough [Recovered/Resolved]
  - Heart rate irregular [Recovered/Resolved]
